FAERS Safety Report 5724364-1 (Version None)
Quarter: 2008Q2

REPORT INFORMATION
  Report Type: 
  Country: None (occurrence: None)
  Receive Date: 20080430
  Receipt Date: 20080418
  Transmission Date: 20081010
  Serious: Yes (Other)
  Sender: FDA-Public Use
  Company Number: US-PFIZER INC-2008027039

PATIENT
  Sex: Male
  Weight: 73.5 kg

DRUGS (2)
  1. EPAMIN [Suspect]
     Indication: CONVULSION
  2. VITAMINS [Concomitant]

REACTIONS (1)
  - CARCINOEMBRYONIC ANTIGEN INCREASED [None]
